FAERS Safety Report 9057070 (Version 1)
Quarter: 2013Q1

REPORT INFORMATION
  Report Type: Spontaneous
  Country: US (occurrence: US)
  Receive Date: 20130131
  Receipt Date: 20130131
  Transmission Date: 20140127
  Serious: Yes (Other)
  Sender: FDA-Public Use
  Company Number: US-PFIZER INC-2013031079

PATIENT
  Age: 38 Year
  Sex: Female

DRUGS (3)
  1. ALSUMA [Suspect]
     Indication: MIGRAINE
     Dosage: 6 MG, UNK
     Route: 058
     Dates: end: 201212
  2. XANAX [Concomitant]
     Dosage: UNK
  3. ZOLOFT [Concomitant]
     Dosage: UNK

REACTIONS (2)
  - Disorientation [Recovered/Resolved]
  - Nausea [Recovered/Resolved]
